FAERS Safety Report 7641002-1 (Version None)
Quarter: 2011Q3

REPORT INFORMATION
  Report Type: 
  Country: None (occurrence: None)
  Receive Date: 20110728
  Receipt Date: 20110721
  Transmission Date: 20111222
  Serious: Yes (Hospitalization)
  Sender: FDA-Public Use
  Company Number: US-SANOFI-AVENTIS-2011SA047891

PATIENT
  Age: 85 Year
  Sex: Male

DRUGS (6)
  1. LASIX [Suspect]
     Route: 048
     Dates: end: 20061105
  2. SYNTHROID [Concomitant]
  3. SIMVASTATIN [Concomitant]
  4. ZETIA [Concomitant]
  5. LISINOPRIL [Concomitant]
  6. AMIODARONE HCL [Concomitant]

REACTIONS (4)
  - DEHYDRATION [None]
  - SYNCOPE [None]
  - LIVER FUNCTION TEST ABNORMAL [None]
  - ORTHOSTATIC HYPOTENSION [None]
